FAERS Safety Report 9079807 (Version 2)
Quarter: 2013Q1

REPORT INFORMATION
  Report Type: Spontaneous
  Country: JP (occurrence: JP)
  Receive Date: 20130215
  Receipt Date: 20130221
  Transmission Date: 20140127
  Serious: Yes (Death, Hospitalization)
  Sender: FDA-Public Use
  Company Number: JP-GLAXOSMITHKLINE-B0866980A

PATIENT
  Age: 84 Year
  Sex: Male

DRUGS (5)
  1. SERETIDE [Suspect]
     Indication: CHRONIC OBSTRUCTIVE PULMONARY DISEASE
     Dosage: 250MCG TWICE PER DAY
     Route: 055
     Dates: start: 20130130, end: 20130202
  2. MEPTIN AIR [Concomitant]
     Route: 055
  3. ADONA (AC-17) [Concomitant]
     Route: 065
  4. PLETAAL [Concomitant]
     Route: 048
  5. BAYASPIRIN [Concomitant]
     Route: 048

REACTIONS (3)
  - Interstitial lung disease [Fatal]
  - Deep vein thrombosis [Unknown]
  - Infection [Unknown]
